FAERS Safety Report 8138532-5 (Version None)
Quarter: 2012Q1

REPORT INFORMATION
  Report Type: 
  Country: None (occurrence: None)
  Receive Date: 20120213
  Receipt Date: 20120202
  Transmission Date: 20120608
  Serious: Yes (Hospitalization, Other)
  Sender: FDA-Public Use
  Company Number: 1000027523

PATIENT
  Age: 66 Year
  Sex: Female

DRUGS (11)
  1. DILTIAZEM HYDROCHLORIDE [Suspect]
     Dosage: 30 MG (30 MG)
  2. DIGOXIN [Concomitant]
  3. IMIPENEM (IMIPENEM) (IMIPENEM) [Concomitant]
  4. MIRTAZAPINE [Concomitant]
  5. SINTROM (ACENOCOUMAROL) (ACENOCOUMAROL) [Concomitant]
  6. N-ACETYLCYSTEINE (ACETYLCYSEINE) (ACETYLSCYSEINE) [Concomitant]
  7. LEVOFLOXACIN [Concomitant]
  8. BROMAZEPAM (BROMAZEPAM) (BROMAZEPAM) [Concomitant]
  9. DILTIAZEM HYDROCHLORIDE [Suspect]
  10. FUROSEMIDE [Concomitant]
  11. CLOPERASTINE (CLOPERASTINE) (CLOPERASTINE) [Concomitant]

REACTIONS (1)
  - DERMATITIS [None]
